FAERS Safety Report 20349234 (Version 2)
Quarter: 2022Q1

REPORT INFORMATION
  Report Type: Report from Study
  Country: US (occurrence: US)
  Receive Date: 20220119
  Receipt Date: 20220129
  Transmission Date: 20220424
  Serious: Yes (Other)
  Sender: FDA-Public Use
  Company Number: US-JNJFOC-20220128913

PATIENT
  Age: 63 Year
  Sex: Male

DRUGS (3)
  1. RIVAROXABAN [Suspect]
     Active Substance: RIVAROXABAN
     Indication: Atrial fibrillation
     Route: 048
     Dates: start: 20190206
  2. RIVAROXABAN [Suspect]
     Active Substance: RIVAROXABAN
     Indication: Cerebrovascular accident prophylaxis
  3. RIVAROXABAN [Suspect]
     Active Substance: RIVAROXABAN
     Indication: Myocardial infarction

REACTIONS (2)
  - Lung neoplasm malignant [Unknown]
  - Metastatic lymphoma [Unknown]

NARRATIVE: CASE EVENT DATE: 20200801
